FAERS Safety Report 6505590-0 (Version None)
Quarter: 2009Q4

REPORT INFORMATION
  Report Type: 
  Country: None (occurrence: None)
  Receive Date: 20091218
  Receipt Date: 20091207
  Transmission Date: 20100525
  Serious: Yes (Hospitalization)
  Sender: FDA-Public Use
  Company Number: FR-PFIZER INC-2006050194

PATIENT
  Age: 65 Year
  Sex: Female
  Weight: 69 kg

DRUGS (7)
  1. XALATAN [Suspect]
     Dosage: 2 DF, 1X/DAY
     Route: 047
     Dates: start: 20060101, end: 20060329
  2. FELDENE [Suspect]
     Dosage: UNK
     Dates: start: 20081001, end: 20081001
  3. FLECAINIDE ACETATE [Suspect]
     Route: 048
     Dates: start: 20030115, end: 20060329
  4. PIROXICAM [Suspect]
     Dosage: 200 MG, SINGLE
     Route: 048
     Dates: end: 20060301
  5. UTROGESTAN [Suspect]
     Dosage: 1 DF, DAILY
     Route: 048
     Dates: end: 20060329
  6. TANAKAN [Suspect]
     Dosage: 3 DOSE FORMS,DAILY
     Route: 048
     Dates: start: 20000101, end: 20060329
  7. ALPHAGAN [Suspect]
     Dosage: 2 DOSE FORMS,DAILY
     Route: 047
     Dates: start: 20060101, end: 20060329

REACTIONS (5)
  - APLASTIC ANAEMIA [None]
  - BONE MARROW FAILURE [None]
  - EPSTEIN-BARR VIRUS INFECTION [None]
  - PANCYTOPENIA [None]
  - PYREXIA [None]
